FAERS Safety Report 24074327 (Version 1)
Quarter: 2024Q3

REPORT INFORMATION
  Report Type: Report from Study
  Country: IT (occurrence: IT)
  Receive Date: 20240710
  Receipt Date: 20240710
  Transmission Date: 20241017
  Serious: Yes (Other)
  Sender: PFIZER
  Company Number: IT-SEATTLE GENETICS-2021SGN04351

PATIENT
  Age: 69 Year
  Sex: Female
  Weight: 70 kg

DRUGS (3)
  1. TUCATINIB [Suspect]
     Active Substance: TUCATINIB
     Indication: HER2 positive breast cancer
     Dosage: 300 MG, CYCLIC: TWICE DAILY WITH A 21-DAY TREATMENT CYCLE
     Route: 048
     Dates: start: 20210524, end: 20210818
  2. ADO-TRASTUZUMAB EMTANSINE [Suspect]
     Active Substance: ADO-TRASTUZUMAB EMTANSINE
     Indication: HER2 positive breast cancer
     Dosage: 600 MG, EVERY 3 WEEKS
     Route: 058
  3. CAPECITABINE [Suspect]
     Active Substance: CAPECITABINE
     Indication: HER2 positive breast cancer
     Dosage: 1000 MG/M2, CYCLIC: TWICE DAILY (DAYS 1 TO 14 OF A 21-DAY CYCLE
     Route: 048

REACTIONS (2)
  - Hepatic cyst [Not Recovered/Not Resolved]
  - Neoplasm progression [Not Recovered/Not Resolved]

NARRATIVE: CASE EVENT DATE: 20210818
